FAERS Safety Report 21804105 (Version 1)
Quarter: 2023Q1

REPORT INFORMATION
  Report Type: Spontaneous
  Country: US (occurrence: US)
  Receive Date: 20230102
  Receipt Date: 20230102
  Transmission Date: 20230417
  Serious: Yes (Hospitalization)
  Sender: FDA-Public Use
  Company Number: US-BIOVITRUM-2022US15963

PATIENT
  Sex: Male
  Weight: 6 kg

DRUGS (8)
  1. SYNAGIS [Suspect]
     Active Substance: PALIVIZUMAB
     Indication: Bronchopulmonary dysplasia
     Dates: start: 20221110
  2. PURAMINO DHA-ARA [Concomitant]
     Dosage: 2.8 G/100 POWDER,
  3. POLY-VI-SOL [VITAMINS NOS] [Concomitant]
     Dosage: 250-50/ML DROPS
  4. SYNTHROID [Concomitant]
     Active Substance: LEVOTHYROXINE SODIUM
     Dosage: 100 MCG TABLET
  5. EPINEPHRINE [Concomitant]
     Active Substance: EPINEPHRINE
  6. SYNAGIS [Suspect]
     Active Substance: PALIVIZUMAB
     Indication: Premature baby
  7. SYNAGIS [Suspect]
     Active Substance: PALIVIZUMAB
     Indication: Atrioventricular septal defect
  8. SYNAGIS [Suspect]
     Active Substance: PALIVIZUMAB
     Indication: Low birth weight baby

REACTIONS (2)
  - Illness [Unknown]
  - Weight decreased [Unknown]
